FAERS Safety Report 8044503-X (Version None)
Quarter: 2012Q1

REPORT INFORMATION
  Report Type: 
  Country: None (occurrence: None)
  Receive Date: 20120113
  Receipt Date: 20120109
  Transmission Date: 20120608
  Serious: Yes (Hospitalization)
  Sender: FDA-Public Use
  Company Number: NZ-JNJFOC-20120103624

PATIENT
  Sex: Female

DRUGS (1)
  1. MEBENDAZOLE [Suspect]
     Indication: HELMINTHIC INFECTION
     Dosage: AS PER THE INSTRUCTIONS ON THE PACK
     Route: 048
     Dates: start: 20120106

REACTIONS (1)
  - ANAPHYLACTIC SHOCK [None]
